FAERS Safety Report 15119680 (Version 2)
Quarter: 2018Q3

REPORT INFORMATION
  Report Type: Spontaneous
  Country: NO (occurrence: NO)
  Receive Date: 20180709
  Receipt Date: 20180801
  Transmission Date: 20181010
  Serious: Yes (Hospitalization, Other)
  Sender: FDA-Public Use
  Company Number: NO-CONCORDIA PHARMACEUTICALS INC.-E2B_00013325

PATIENT
  Age: 18 Year
  Sex: Male

DRUGS (9)
  1. IFOSFAMIDE. [Concomitant]
     Active Substance: IFOSFAMIDE
     Indication: TESTIS CANCER
     Dosage: THREE COURSES
  2. ETOPOSIDE. [Concomitant]
     Active Substance: ETOPOSIDE
     Indication: TESTIS CANCER
     Dosage: 2 COURSES OF UNDER BEP REGIMEN TWO COURSES OF HIGH?DOSE
  3. IMATINIB MESILATE [Suspect]
     Active Substance: IMATINIB MESYLATE
     Indication: ACUTE INTERSTITIAL PNEUMONITIS
     Route: 045
  4. CARBOPLATIN. [Concomitant]
     Active Substance: CARBOPLATIN
     Indication: TESTIS CANCER
     Dosage: TWO COURSES OF HIGH?DOSE CHEMOTHERAPY
  5. CISPLATIN. [Concomitant]
     Active Substance: CISPLATIN
     Indication: TESTIS CANCER
     Dosage: 2 COURSES OF UNDER BEP REGIMEN, 3 COURSES UNDER TIP
  6. BLEOMYCIN SULFATE [Suspect]
     Active Substance: BLEOMYCIN SULFATE
     Indication: TESTIS CANCER
     Dosage: 2 COURSES OF UNDER BEP REGIMEN
  7. PREDNISOLONE. [Suspect]
     Active Substance: PREDNISOLONE
     Dosage: HIGH?DOSE
  8. IMATINIB MESILATE [Suspect]
     Active Substance: IMATINIB MESYLATE
     Indication: ACUTE INTERSTITIAL PNEUMONITIS
     Route: 045
  9. PACLITAXEL. [Concomitant]
     Active Substance: PACLITAXEL
     Indication: TESTIS CANCER
     Dosage: THREE COURSES

REACTIONS (5)
  - Pneumonitis [Recovering/Resolving]
  - Therapeutic response unexpected [Recovered/Resolved]
  - Off label use [Unknown]
  - Neutropenia [Recovered/Resolved]
  - Stenotrophomonas infection [Recovering/Resolving]
